FAERS Safety Report 9088637 (Version 1)
Quarter: 2013Q1

REPORT INFORMATION
  Report Type: Report from Study
  Country: US (occurrence: US)
  Receive Date: 20130218
  Receipt Date: 20130218
  Transmission Date: 20140127
  Serious: No
  Sender: FDA-Public Use
  Company Number: US-ABBOTT-12P-163-0919276-00

PATIENT
  Sex: Male
  Weight: 127.12 kg

DRUGS (10)
  1. SIMCOR 1000MG/20MG [Suspect]
     Indication: HIGH DENSITY LIPOPROTEIN DECREASED
     Dosage: 1000/20 MG AT BEDTIME
     Route: 048
  2. SIMCOR 1000MG/20MG [Suspect]
     Dosage: 1000/20 MG 2 AT BEDTIME
     Route: 048
  3. BENICAR [Concomitant]
     Indication: PRODUCT USED FOR UNKNOWN INDICATION
     Route: 048
  4. PLAVIX [Concomitant]
     Indication: PRODUCT USED FOR UNKNOWN INDICATION
     Route: 048
  5. UNKNOWN THYROID MEDICATION [Concomitant]
     Indication: PRODUCT USED FOR UNKNOWN INDICATION
     Route: 048
  6. ADVAIR [Concomitant]
     Indication: PRODUCT USED FOR UNKNOWN INDICATION
  7. ANDROGEL [Concomitant]
     Indication: PRODUCT USED FOR UNKNOWN INDICATION
     Route: 048
  8. ACIPHEX [Concomitant]
     Indication: PRODUCT USED FOR UNKNOWN INDICATION
     Route: 048
  9. IBUPROFEN [Concomitant]
     Indication: PRODUCT USED FOR UNKNOWN INDICATION
     Route: 048
  10. UNKNOWN PAIN MEDICATIONS [Concomitant]
     Indication: SHOULDER OPERATION
     Route: 048

REACTIONS (4)
  - Asthma [Unknown]
  - Gastrooesophageal reflux disease [Recovered/Resolved]
  - Flushing [Recovered/Resolved]
  - Drug ineffective [Unknown]
